FAERS Safety Report 12085625 (Version 1)
Quarter: 2016Q1

REPORT INFORMATION
  Report Type: Spontaneous
  Country: US (occurrence: US)
  Receive Date: 20160217
  Receipt Date: 20160217
  Transmission Date: 20160526
  Serious: No
  Sender: FDA-Public Use
  Company Number: US-GLAXOSMITHKLINE-A0760087A

PATIENT
  Sex: Female

DRUGS (6)
  1. FLUTICASONE PROPIONATE+SALMETEROL XINAFOATE [Suspect]
     Active Substance: FLUTICASONE PROPIONATE\SALMETEROL XINAFOATE
  2. ADVAIR HFA [Suspect]
     Active Substance: FLUTICASONE PROPIONATE\SALMETEROL XINAFOATE
     Indication: CHRONIC OBSTRUCTIVE PULMONARY DISEASE
  3. FORADIL [Concomitant]
     Active Substance: FORMOTEROL FUMARATE
  4. ADVAIR HFA [Suspect]
     Active Substance: FLUTICASONE PROPIONATE\SALMETEROL XINAFOATE
     Indication: ASTHMA
     Dosage: 150/50 MCG
     Route: 055
  5. ALBUTEROL INHALATIONAL POWDER [Concomitant]
     Active Substance: ALBUTEROL
  6. AEROBID [Concomitant]
     Active Substance: FLUNISOLIDE

REACTIONS (11)
  - Dyspnoea [Unknown]
  - Headache [Unknown]
  - Sputum increased [Unknown]
  - Adverse drug reaction [Unknown]
  - Medication error [Unknown]
  - Pain [Unknown]
  - Painful respiration [Unknown]
  - Drug ineffective [Unknown]
  - Drug hypersensitivity [Unknown]
  - Bedridden [Unknown]
  - Inhalation therapy [Unknown]
